FAERS Safety Report 6678292-8 (Version None)
Quarter: 2010Q2

REPORT INFORMATION
  Report Type: 
  Country: None (occurrence: None)
  Receive Date: 20100412
  Receipt Date: 20100412
  Transmission Date: 20101027
  Serious: No
  Sender: FDA-Public Use
  Company Number: None

PATIENT
  Age: 47 Year
  Sex: Male
  Weight: 108.8633 kg

DRUGS (1)
  1. GLUMETZA [Suspect]
     Indication: DIABETES MELLITUS
     Dosage: 500 MG 1-2 PER DAY PO
     Route: 048
     Dates: start: 20100403, end: 20100406

REACTIONS (1)
  - VISION BLURRED [None]
